FAERS Safety Report 22351524 (Version 1)
Quarter: 2023Q2

REPORT INFORMATION
  Report Type: Spontaneous
  Country: US (occurrence: None)
  Receive Date: 20230522
  Receipt Date: 20230522
  Transmission Date: 20230722
  Serious: Yes (Other)
  Sender: FDA-Public Use
  Company Number: None

PATIENT
  Sex: Female

DRUGS (2)
  1. CIMZIA [Suspect]
     Active Substance: CERTOLIZUMAB PEGOL
     Indication: Psoriatic arthropathy
     Dosage: 2 X 200 MG/ML SUBCUTANEOUS??INJECT 400MG UNDER THE SKIN (SUBCUTANEOUS INJECTION) ONCE MONTHLY?
     Route: 058
     Dates: start: 20230117
  2. SKYRIZI [Concomitant]
     Active Substance: RISANKIZUMAB-RZAA

REACTIONS (4)
  - Drug ineffective [None]
  - Therapy cessation [None]
  - Loss of personal independence in daily activities [None]
  - Pain [None]
